FAERS Safety Report 13995685 (Version 3)
Quarter: 2018Q3

REPORT INFORMATION
  Report Type: Spontaneous
  Country: US (occurrence: US)
  Receive Date: 20170921
  Receipt Date: 20180927
  Transmission Date: 20181010
  Serious: No
  Sender: FDA-Public Use
  Company Number: US-PFIZER INC-2017408248

PATIENT
  Age: 68 Year
  Sex: Male
  Weight: 88 kg

DRUGS (13)
  1. DRONABINOL. [Concomitant]
     Active Substance: DRONABINOL
     Dosage: 5 MG, UNK
     Dates: start: 2017
  2. OXYCODONE [Concomitant]
     Active Substance: OXYCODONE
     Indication: ANKYLOSING SPONDYLITIS
     Dosage: 15 MG, UNK (EVERY 6 HOURS)
     Dates: start: 2017
  3. PROMETHAZINE [Concomitant]
     Active Substance: PROMETHAZINE\PROMETHAZINE HYDROCHLORIDE
     Indication: NAUSEA
     Dosage: 25 MG, 3X/DAY
     Dates: start: 2005
  4. HYDROCODONE [Concomitant]
     Active Substance: HYDROCODONE
     Indication: SWELLING
     Dosage: 25 MG, UNK
     Dates: start: 2007
  5. DIAZEPAM. [Concomitant]
     Active Substance: DIAZEPAM
     Dosage: 10 MG, 1X/DAY (AT BED TIME)
     Dates: start: 2007
  6. FENTANYL CITRATE. [Suspect]
     Active Substance: FENTANYL CITRATE
     Indication: ANKYLOSING SPONDYLITIS
     Dosage: 80.7 UG/HR
     Dates: start: 201502
  7. SUFENTANIL CITRATE. [Suspect]
     Active Substance: SUFENTANIL CITRATE
     Dosage: UNK UNK, DAILY [52.054 UG/DAY]
  8. SUFENTANIL CITRATE. [Suspect]
     Active Substance: SUFENTANIL CITRATE
     Dosage: UNK
     Dates: start: 2015
  9. AMITRIPTYLINE HCL [Concomitant]
     Active Substance: AMITRIPTYLINE
     Dosage: 10 MG, UNK (3 AT BED TIME)
     Dates: start: 2007
  10. SUFENTANIL CITRATE. [Suspect]
     Active Substance: SUFENTANIL CITRATE
     Indication: ANKYLOSING SPONDYLITIS
     Dosage: 2.087 UG/HR
  11. FENTANYL CITRATE. [Suspect]
     Active Substance: FENTANYL CITRATE
     Dosage: UNK UNK, DAILY [2000,012.7 UG/DAY]
  12. GABAPENTIN. [Concomitant]
     Active Substance: GABAPENTIN
     Dosage: 600 MG, 3X/DAY
     Dates: start: 2007
  13. TIZANIDINE HCL [Concomitant]
     Active Substance: TIZANIDINE HYDROCHLORIDE
     Dosage: 4 MG, 2X/DAY
     Dates: start: 2017

REACTIONS (1)
  - Blood testosterone decreased [Not Recovered/Not Resolved]

NARRATIVE: CASE EVENT DATE: 2017
